FAERS Safety Report 5029184-1 (Version None)
Quarter: 2006Q2

REPORT INFORMATION
  Report Type: 
  Country: None (occurrence: None)
  Receive Date: 20060613
  Receipt Date: 20060606
  Transmission Date: 20061013
  Serious: Yes (Hospitalization, Other)
  Sender: FDA-Public Use
  Company Number: FRWYE691906JUN06

PATIENT
  Age: 43 Year
  Sex: Female

DRUGS (6)
  1. EFFEXOR [Suspect]
     Indication: DEPRESSION
     Dosage: 50 MG 1X PER 1 DAY; ORAL; 100 MG, TOTAL DAILY; ORAL (SEE IMAGE)
     Route: 048
     Dates: start: 20060101, end: 20060401
  2. EFFEXOR [Suspect]
     Indication: DEPRESSION
     Dosage: 50 MG 1X PER 1 DAY; ORAL; 100 MG, TOTAL DAILY; ORAL (SEE IMAGE)
     Route: 048
     Dates: start: 20060401, end: 20060501
  3. EFFEXOR [Suspect]
     Indication: DEPRESSION
     Dosage: 50 MG 1X PER 1 DAY; ORAL; 100 MG, TOTAL DAILY; ORAL (SEE IMAGE)
     Route: 048
     Dates: start: 20060501, end: 20060501
  4. EFFEXOR [Suspect]
     Indication: DEPRESSION
     Dosage: 50 MG 1X PER 1 DAY; ORAL; 100 MG, TOTAL DAILY; ORAL (SEE IMAGE)
     Route: 048
     Dates: start: 20060501
  5. TERCIAN (CYAMEMAZINE) [Concomitant]
  6. OXAZEPAM [Concomitant]

REACTIONS (2)
  - GRAND MAL CONVULSION [None]
  - TREATMENT NONCOMPLIANCE [None]
